FAERS Safety Report 15744329 (Version 1)
Quarter: 2018Q4

REPORT INFORMATION
  Report Type: Spontaneous
  Country: US (occurrence: US)
  Receive Date: 20181220
  Receipt Date: 20181220
  Transmission Date: 20190205
  Serious: Yes (Other)
  Sender: FDA-Public Use
  Company Number: US-ELI_LILLY_AND_COMPANY-US201812006025

PATIENT
  Sex: Female

DRUGS (6)
  1. HUMALOG MIX75/25 [Suspect]
     Active Substance: INSULIN LISPRO
     Indication: DIABETES MELLITUS
     Dosage: 100 U, DAILY
     Route: 058
  2. HUMALOG MIX75/25 [Interacting]
     Active Substance: INSULIN LISPRO
     Dosage: 50 U, DAILY
     Route: 058
  3. HUMALOG MIX75/25 [Interacting]
     Active Substance: INSULIN LISPRO
     Dosage: 40 U, EACH MORNING
     Route: 058
  4. HUMALOG MIX75/25 [Interacting]
     Active Substance: INSULIN LISPRO
     Dosage: 60 U, DAILY (NIGHT)
     Route: 058
  5. HUMALOG MIX75/25 [Interacting]
     Active Substance: INSULIN LISPRO
     Indication: DIABETES MELLITUS
     Dosage: 20 U, EACH MORNING
     Route: 058
  6. PREDNISONE. [Interacting]
     Active Substance: PREDNISONE
     Indication: EYE DISORDER
     Dosage: UNK UNK, UNKNOWN
     Route: 065

REACTIONS (7)
  - Blood glucose increased [Not Recovered/Not Resolved]
  - Drug interaction [Not Recovered/Not Resolved]
  - Cancer in remission [Unknown]
  - Hypoacusis [Not Recovered/Not Resolved]
  - Blood pressure increased [Not Recovered/Not Resolved]
  - Glycosylated haemoglobin increased [Not Recovered/Not Resolved]
  - Breast cancer [Unknown]

NARRATIVE: CASE EVENT DATE: 201711
